FAERS Safety Report 4478228-4 (Version None)
Quarter: 2004Q4

REPORT INFORMATION
  Report Type: 
  Country: None (occurrence: None)
  Receive Date: 20041018
  Receipt Date: 20041018
  Transmission Date: 20050328
  Serious: Yes (Hospitalization, Other)
  Sender: FDA-Public Use
  Company Number: None

PATIENT
  Age: 91 Year

DRUGS (6)
  1. ETOMIDATE [Suspect]
     Indication: ANAESTHESIA
     Dosage: UNKNOWN - ONCE
  2. CLONIDINE HCL [Concomitant]
  3. OMEPRAZOLE [Concomitant]
  4. TEMAZEPAM [Concomitant]
  5. APAP TAB [Concomitant]
  6. LOROZEPAM [Concomitant]

REACTIONS (4)
  - CARDIO-RESPIRATORY ARREST [None]
  - ELECTROMECHANICAL DISSOCIATION [None]
  - HYPOTENSION [None]
  - PULSE ABSENT [None]
